FAERS Safety Report 4451492-3 (Version None)
Quarter: 2004Q3

REPORT INFORMATION
  Report Type: 
  Country: None (occurrence: None)
  Receive Date: 20040915
  Receipt Date: 20040901
  Transmission Date: 20050211
  Serious: No
  Sender: FDA-Public Use
  Company Number: A01200404163

PATIENT
  Age: 66 Year
  Sex: Female

DRUGS (8)
  1. PLAVIX [Suspect]
     Dosage: 75 MG OD, ORAL
     Route: 048
     Dates: start: 20010826, end: 20030926
  2. SERETIDE (GALENIC/FLUTICASONE/SALMETEROL) [Concomitant]
  3. ALVEDON (PARACETAMOL) [Concomitant]
  4. SALURES-K [Concomitant]
  5. OESTRIOL (ESTRIOL) [Concomitant]
  6. SINGULAIR (MONTELUKAST) [Concomitant]
  7. NOVORAPID (INSULIN ASPART) [Concomitant]
  8. LANTUS [Concomitant]

REACTIONS (4)
  - ASTHMA [None]
  - COUGH [None]
  - FATIGUE [None]
  - GENERAL PHYSICAL HEALTH DETERIORATION [None]
